FAERS Safety Report 9015568 (Version 1)
Quarter: 2013Q1

REPORT INFORMATION
  Report Type: Spontaneous
  Country: US (occurrence: None)
  Receive Date: 20130110
  Receipt Date: 20130110
  Transmission Date: 20140127
  Serious: Yes (Life-Threatening, Hospitalization)
  Sender: FDA-Public Use
  Company Number: None

PATIENT
  Age: 84 Year
  Sex: Female
  Weight: 28.35 kg

DRUGS (5)
  1. TEMOZOLOMIDE [Suspect]
     Indication: MALIGNANT MELANOMA
     Dosage: 300MG ONCE DAILY X5
     Dates: start: 20121212, end: 20121216
  2. TEMOZOLOMIDE [Suspect]
     Indication: MALIGNANT MELANOMA
     Dosage: 40MG ONCE DAILY X5
  3. SENNA-DOCUSATE SODIUM [SENOKOT S] [Concomitant]
  4. OXYCODONE [Concomitant]
  5. VITAMIN B-6 [Concomitant]

REACTIONS (8)
  - Thrombocytopenia [None]
  - Febrile neutropenia [None]
  - Urinary tract infection [None]
  - Lung hyperinflation [None]
  - Aortic calcification [None]
  - Granuloma [None]
  - Compression fracture [None]
  - Thoracic vertebral fracture [None]
